FAERS Safety Report 13593504 (Version 2)
Quarter: 2017Q3

REPORT INFORMATION
  Report Type: Spontaneous
  Country: JP (occurrence: JP)
  Receive Date: 20170530
  Receipt Date: 20170809
  Transmission Date: 20171127
  Serious: Yes (Hospitalization)
  Sender: FDA-Public Use
  Company Number: JP-ELI_LILLY_AND_COMPANY-JP201705010564

PATIENT
  Age: 68 Year
  Sex: Male

DRUGS (11)
  1. IRINOTECAN [Concomitant]
     Active Substance: IRINOTECAN
     Indication: PRODUCT USED FOR UNKNOWN INDICATION
     Dosage: UNK
     Route: 065
     Dates: start: 201703
  2. TRAZENTA [Concomitant]
     Active Substance: LINAGLIPTIN
     Dosage: UNK
     Route: 048
  3. CRESTOR [Concomitant]
     Active Substance: ROSUVASTATIN CALCIUM
     Dosage: UNK
     Route: 048
     Dates: start: 20170509
  4. LEVOFOLINATE CALCIUM [Concomitant]
     Active Substance: LEVOLEUCOVORIN CALCIUM
     Indication: PRODUCT USED FOR UNKNOWN INDICATION
     Dosage: UNK
     Route: 065
     Dates: start: 201703
  5. CYRAMZA [Suspect]
     Active Substance: RAMUCIRUMAB
     Indication: PRODUCT USED FOR UNKNOWN INDICATION
     Dosage: UNK
     Route: 041
     Dates: start: 201703
  6. 5 FU [Suspect]
     Active Substance: FLUOROURACIL
     Indication: PRODUCT USED FOR UNKNOWN INDICATION
     Dosage: UNK
     Route: 065
     Dates: start: 201703
  7. ACTOS [Concomitant]
     Active Substance: PIOGLITAZONE HYDROCHLORIDE
     Dosage: UNK
     Route: 048
     Dates: start: 20170509
  8. VALSARTAN. [Concomitant]
     Active Substance: VALSARTAN
     Dosage: UNK
     Route: 048
     Dates: start: 20161012
  9. BISOPROLOL                         /00802602/ [Concomitant]
     Active Substance: BISOPROLOL
     Dosage: UNK
     Route: 048
  10. CLOPIDOGREL [Concomitant]
     Active Substance: CLOPIDOGREL BISULFATE
     Dosage: UNK
     Route: 048
     Dates: start: 20170509
  11. TAKELDA [Concomitant]
     Active Substance: ASPIRIN\LANSOPRAZOLE
     Dosage: UNK
     Route: 048
     Dates: start: 20170509

REACTIONS (1)
  - Hepatic encephalopathy [Recovered/Resolved]

NARRATIVE: CASE EVENT DATE: 20170524
